FAERS Safety Report 18424323 (Version 2)
Quarter: 2020Q4

REPORT INFORMATION
  Report Type: Report from Study
  Country: GB (occurrence: GB)
  Receive Date: 20201025
  Receipt Date: 20201116
  Transmission Date: 20210114
  Serious: Yes (Other)
  Sender: FDA-Public Use
  Company Number: GB-B.I. PHARMACEUTICALS,INC./RIDGEFIELD-2020-BI-056133

PATIENT
  Age: 62 Year
  Sex: Male

DRUGS (1)
  1. OFEV [Suspect]
     Active Substance: NINTEDANIB
     Indication: IDIOPATHIC PULMONARY FIBROSIS
     Dosage: 1 CAPSULE TO BE TAKEN 2 TIMES A DAY
     Route: 048
     Dates: start: 201906, end: 202003

REACTIONS (1)
  - Lower respiratory tract infection [Unknown]
